FAERS Safety Report 4449696-9 (Version None)
Quarter: 2004Q3

REPORT INFORMATION
  Report Type: 
  Country: None (occurrence: None)
  Receive Date: 20040913
  Receipt Date: 20040830
  Transmission Date: 20050211
  Serious: Yes (Disabling, Other)
  Sender: FDA-Public Use
  Company Number: ATO-04-0784

PATIENT
  Age: 75 Year
  Sex: Male

DRUGS (1)
  1. TRISENOX [Suspect]
     Indication: GLIOBLASTOMA MULTIFORME
     Dosage: 0.25 MG/KG, QD X 5 DAYS
     Dates: start: 20040218, end: 20040301

REACTIONS (11)
  - ACTIVITIES OF DAILY LIVING IMPAIRED [None]
  - AGITATION [None]
  - COGNITIVE DETERIORATION [None]
  - COGNITIVE DISORDER [None]
  - CONFUSIONAL STATE [None]
  - DEPRESSION [None]
  - DISORIENTATION [None]
  - DRUG TOXICITY [None]
  - FATIGUE [None]
  - KARNOFSKY SCALE WORSENED [None]
  - SPEECH DISORDER [None]
